FAERS Safety Report 13965042 (Version 1)
Quarter: 2017Q3

REPORT INFORMATION
  Report Type: Spontaneous
  Country: US (occurrence: US)
  Receive Date: 20170913
  Receipt Date: 20170913
  Transmission Date: 20171128
  Serious: No
  Sender: FDA-Public Use
  Company Number: US-JNJFOC-20170701192

PATIENT
  Age: 75 Year
  Sex: Male
  Weight: 104.33 kg

DRUGS (21)
  1. ATORVASTATIN [Concomitant]
     Active Substance: ATORVASTATIN
     Indication: PROSTATE CANCER
     Route: 065
     Dates: start: 20170111
  2. PREDNISONE. [Concomitant]
     Active Substance: PREDNISONE
     Indication: PROSTATE CANCER
     Route: 048
     Dates: start: 20160913
  3. ASPIRIN. [Concomitant]
     Active Substance: ASPIRIN
     Indication: PROSTATE CANCER
     Route: 048
     Dates: start: 20140430
  4. CENTRUM SILVER [Concomitant]
     Active Substance: MINERALS\VITAMINS
     Indication: PROSTATE CANCER
     Route: 065
     Dates: start: 20170411
  5. CRESTOR [Concomitant]
     Active Substance: ROSUVASTATIN CALCIUM
     Indication: PROSTATE CANCER
     Route: 065
     Dates: start: 20140113
  6. ZYTIGA [Suspect]
     Active Substance: ABIRATERONE ACETATE
     Indication: PROSTATE CANCER
     Route: 048
     Dates: start: 201610
  7. ALBUTEROL SULFATE. [Concomitant]
     Active Substance: ALBUTEROL SULFATE
     Indication: PROSTATE CANCER
     Route: 065
     Dates: start: 20140430
  8. HYOSCYAMINE SULFATE. [Concomitant]
     Active Substance: HYOSCYAMINE SULFATE
     Indication: BLADDER SPASM
     Route: 065
     Dates: start: 20140604
  9. OMEPRAZOLE. [Concomitant]
     Active Substance: OMEPRAZOLE
     Indication: PROSTATE CANCER
     Route: 048
     Dates: start: 20130904
  10. AMLODIPINE BESYLATE. [Concomitant]
     Active Substance: AMLODIPINE BESYLATE
     Indication: PROSTATE CANCER
     Route: 048
  11. FISH OIL [Concomitant]
     Active Substance: FISH OIL
     Indication: PROSTATE CANCER
     Route: 048
     Dates: start: 20170411
  12. PRILOSEC [Concomitant]
     Active Substance: OMEPRAZOLE MAGNESIUM
     Indication: PROSTATE CANCER
     Route: 048
     Dates: start: 20170411
  13. PROVENGE [Concomitant]
     Active Substance: SIPULEUCEL-T
     Route: 042
  14. SODIUM CHLORIDE. [Concomitant]
     Active Substance: SODIUM CHLORIDE
     Route: 042
  15. XGEVA [Concomitant]
     Active Substance: DENOSUMAB
     Route: 058
  16. LOSARTAN. [Concomitant]
     Active Substance: LOSARTAN
     Indication: PROSTATE CANCER
     Dosage: 100-12.5 MG
     Route: 048
     Dates: start: 20130925
  17. LUPRON [Concomitant]
     Active Substance: LEUPROLIDE ACETATE
     Indication: PROSTATE CANCER
     Route: 065
     Dates: start: 20170411
  18. ONDANSETRON [Concomitant]
     Active Substance: ONDANSETRON
     Indication: PROSTATE CANCER
     Route: 048
     Dates: start: 20170411
  19. VICTOZA [Concomitant]
     Active Substance: LIRAGLUTIDE
     Indication: PROSTATE CANCER
     Route: 048
     Dates: start: 20170111
  20. VITAMIN B12 [Concomitant]
     Active Substance: CYANOCOBALAMIN
     Indication: PROSTATE CANCER
     Route: 048
     Dates: start: 20170411
  21. ALPRAZOLAM. [Concomitant]
     Active Substance: ALPRAZOLAM
     Route: 048

REACTIONS (2)
  - Prostatic specific antigen increased [Unknown]
  - Pharyngitis streptococcal [Unknown]

NARRATIVE: CASE EVENT DATE: 201612
